FAERS Safety Report 15218514 (Version 2)
Quarter: 2018Q3

REPORT INFORMATION
  Report Type: Report from Study
  Country: JP (occurrence: JP)
  Receive Date: 20180730
  Receipt Date: 20180904
  Transmission Date: 20181010
  Serious: Yes (Hospitalization, Other)
  Sender: FDA-Public Use
  Company Number: JP-009507513-1807JPN002687J

PATIENT
  Age: 78 Year
  Sex: Male
  Weight: 49 kg

DRUGS (7)
  1. CALONAL [Concomitant]
     Active Substance: ACETAMINOPHEN
     Indication: TRANSITIONAL CELL CARCINOMA
     Dosage: 500 MG, TID
     Route: 048
  2. PANTETHINE [Concomitant]
     Active Substance: PANTETHINE
     Indication: TRANSITIONAL CELL CARCINOMA
     Dosage: 1 G, TID
     Route: 048
  3. NAIXAN [Concomitant]
     Active Substance: NAPROXEN SODIUM
     Indication: TRANSITIONAL CELL CARCINOMA
     Dosage: 100 MG, QD
     Route: 048
  4. KEYTRUDA [Suspect]
     Active Substance: PEMBROLIZUMAB
     Indication: TRANSITIONAL CELL CARCINOMA
     Dosage: 200 MG, Q3W
     Route: 041
     Dates: start: 20180322, end: 20180510
  5. MAGMITT [Concomitant]
     Active Substance: MAGNESIUM OXIDE
     Indication: TRANSITIONAL CELL CARCINOMA
     Dosage: 0.4 G, TID
     Route: 048
  6. AMITIZA [Concomitant]
     Active Substance: LUBIPROSTONE
     Indication: TRANSITIONAL CELL CARCINOMA
     Dosage: 24 MICROGRAM, QD
     Route: 048
  7. ETIZOLAM [Concomitant]
     Active Substance: ETIZOLAM
     Indication: TRANSITIONAL CELL CARCINOMA
     Dosage: 0.5 MG, QD
     Route: 048

REACTIONS (1)
  - Cholangitis [Recovering/Resolving]

NARRATIVE: CASE EVENT DATE: 20180524
